FAERS Safety Report 25897240 (Version 1)
Quarter: 2025Q4

REPORT INFORMATION
  Report Type: Spontaneous
  Country: IN (occurrence: IN)
  Receive Date: 20251008
  Receipt Date: 20251008
  Transmission Date: 20260118
  Serious: Yes (Other)
  Sender: GLAND PHARMA LTD
  Company Number: IN-GLANDPHARMA-IN-2025GLNLIT01959

PATIENT
  Age: 23 Year
  Sex: Male

DRUGS (1)
  1. DEXAMETHASONE SODIUM PHOSPHATE [Suspect]
     Active Substance: DEXAMETHASONE SODIUM PHOSPHATE
     Indication: Dermatitis allergic
     Route: 030

REACTIONS (3)
  - Pseudo Cushing^s syndrome [Unknown]
  - Hypothalamic pituitary adrenal axis suppression [Recovered/Resolved]
  - Product administration error [Unknown]
